FAERS Safety Report 18191322 (Version 2)
Quarter: 2020Q4

REPORT INFORMATION
  Report Type: Spontaneous
  Country: US (occurrence: US)
  Receive Date: 20200824
  Receipt Date: 20201015
  Transmission Date: 20210113
  Serious: No
  Sender: FDA-Public Use
  Company Number: US-ASTRAZENECA-2020SF03699

PATIENT
  Age: 5111 Day
  Sex: Male

DRUGS (1)
  1. FASENRA [Suspect]
     Active Substance: BENRALIZUMAB
     Indication: EOSINOPHILIC GASTRITIS
     Dosage: 30MG/ML FIRST 3 DOSES EVERY MONTH AND EVERY 8 WEEKS THEREAFTER
     Route: 058
     Dates: start: 2020

REACTIONS (5)
  - Off label use [Not Recovered/Not Resolved]
  - Eosinophil count increased [Unknown]
  - Incorrect dose administered by device [Not Recovered/Not Resolved]
  - Device leakage [Unknown]
  - Device malfunction [Unknown]

NARRATIVE: CASE EVENT DATE: 20200810
